FAERS Safety Report 5390196-X (Version None)
Quarter: 2007Q3

REPORT INFORMATION
  Report Type: 
  Country: None (occurrence: None)
  Receive Date: 20070718
  Receipt Date: 20070710
  Transmission Date: 20080115
  Serious: Yes (Other)
  Sender: FDA-Public Use
  Company Number: GR-ABBOTT-07P-066-0374199-00

PATIENT
  Age: 61 Year
  Sex: Male
  Weight: 60 kg

DRUGS (11)
  1. HUMIRA [Suspect]
     Indication: RHEUMATOID ARTHRITIS
     Dates: start: 20061124, end: 20070328
  2. METHOTREXATE [Concomitant]
     Indication: RHEUMATOID ARTHRITIS
     Route: 048
     Dates: start: 20061212
  3. THYRORMONE 0.1 [Concomitant]
     Indication: HYPOTHYROIDISM
     Route: 048
     Dates: start: 19820101
  4. GLYCERYL TRINITRATE [Concomitant]
     Indication: CORONARY ARTERY DISEASE
     Dosage: 1 X 1 TTS
     Dates: start: 20050101
  5. CARVEDILOL [Concomitant]
     Indication: HYPERTENSION
     Dosage: 6.25
     Route: 048
     Dates: start: 20020101
  6. LEKOVIT CA [Concomitant]
     Indication: OSTEOPOROSIS
     Route: 048
     Dates: start: 20030101
  7. PRAVASTATIN SODIUM [Concomitant]
     Indication: DYSLIPIDAEMIA
     Route: 048
     Dates: start: 20020101
  8. EGICALM CARDIO SACHETS [Concomitant]
     Indication: CORONARY ARTERY DISEASE
     Route: 048
     Dates: start: 20020101
  9. BROMAZEPAM [Concomitant]
     Indication: ANXIETY
     Route: 048
     Dates: start: 20020101
  10. ALENDRONATE SODIUM [Concomitant]
     Indication: OSTEOPOROSIS
     Route: 048
     Dates: start: 20030101
  11. OMEPRAZOLE [Concomitant]
     Indication: PROPHYLAXIS AGAINST GASTROINTESTINAL ULCER
     Route: 048
     Dates: start: 20020101

REACTIONS (5)
  - ABDOMINAL PAIN [None]
  - ASTHENIA [None]
  - CARDIAC FAILURE [None]
  - FATIGUE [None]
  - NAUSEA [None]
